FAERS Safety Report 4408074-9 (Version None)
Quarter: 2004Q3

REPORT INFORMATION
  Report Type: 
  Country: None (occurrence: None)
  Receive Date: 20040721
  Receipt Date: 20040709
  Transmission Date: 20050211
  Serious: Yes (Hospitalization)
  Sender: FDA-Public Use
  Company Number: 04P-056-0266590-00

PATIENT
  Age: 51 Year
  Sex: Female

DRUGS (9)
  1. DEPAKOTE [Suspect]
     Indication: BIPOLAR DISORDER
     Dosage: UNK (SEE MAGE)
     Route: 065
     Dates: end: 20030101
  2. DEPAKOTE [Suspect]
     Indication: PROPHYLAXIS
     Dosage: UNK (SEE MAGE)
     Route: 065
     Dates: end: 20030101
  3. DEPAKOTE [Suspect]
     Indication: BIPOLAR DISORDER
     Dosage: UNK (SEE MAGE)
     Route: 065
     Dates: start: 20040429, end: 20040501
  4. DEPAKOTE [Suspect]
     Indication: PROPHYLAXIS
     Dosage: UNK (SEE MAGE)
     Route: 065
     Dates: start: 20040429, end: 20040501
  5. DEPAKOTE [Suspect]
     Indication: BIPOLAR DISORDER
     Dosage: UNK (SEE MAGE)
     Route: 065
     Dates: start: 20040502, end: 20040510
  6. DEPAKOTE [Suspect]
     Indication: PROPHYLAXIS
     Dosage: UNK (SEE MAGE)
     Route: 065
     Dates: start: 20040502, end: 20040510
  7. CITALOPRAM HYDROBROMIDE [Concomitant]
  8. OLANZAPINE [Concomitant]
  9. CLONAZEPAM [Concomitant]

REACTIONS (13)
  - COMA [None]
  - CONVERSION DISORDER [None]
  - DISORIENTATION [None]
  - DYSARTHRIA [None]
  - ELECTROENCEPHALOGRAM ABNORMAL [None]
  - HAEMODYNAMIC INSTABILITY [None]
  - HYPERAMMONAEMIA [None]
  - HYPOREFLEXIA [None]
  - HYPOTONIA [None]
  - METABOLIC ENCEPHALOPATHY [None]
  - OVERDOSE [None]
  - PYREXIA [None]
  - TACHYCARDIA [None]
